FAERS Safety Report 23096722 (Version 1)
Quarter: 2023Q4

REPORT INFORMATION
  Report Type: Spontaneous
  Country: CN (occurrence: CN)
  Receive Date: 20231023
  Receipt Date: 20231023
  Transmission Date: 20240110
  Serious: Yes (Other)
  Sender: FDA-Public Use
  Company Number: CN-PFIZER INC-PV202300172906

PATIENT
  Age: 45 Year
  Sex: Female

DRUGS (5)
  1. IRINOTECAN [Suspect]
     Active Substance: IRINOTECAN
     Indication: Rectal cancer
     Dosage: 180 MG, 1X/DAY
     Route: 041
     Dates: start: 20230930, end: 20231002
  2. PACLITAXEL [Suspect]
     Active Substance: PACLITAXEL
     Indication: Rectal cancer
     Dosage: 120 MG, 1X/DAY
     Route: 041
     Dates: start: 20230930, end: 20231002
  3. OXALIPLATIN [Suspect]
     Active Substance: OXALIPLATIN
     Indication: Rectal cancer
     Dosage: 110 MG, 1X/DAY
     Route: 041
     Dates: start: 20230930, end: 20231002
  4. LEVOLEUCOVORIN CALCIUM [Suspect]
     Active Substance: LEVOLEUCOVORIN CALCIUM
     Indication: Rectal cancer
     Dosage: 275 MG, 1X/DAY
     Route: 041
     Dates: start: 20230930, end: 20231002
  5. FLUOROURACIL [Suspect]
     Active Substance: FLUOROURACIL
     Indication: Rectal cancer
     Dosage: 3.25 G, 1X/DAY
     Route: 042
     Dates: start: 20230930, end: 20231002

REACTIONS (7)
  - Gastrointestinal disorder [Recovered/Resolved]
  - Fatigue [Unknown]
  - Nausea [Recovering/Resolving]
  - Vomiting [Recovering/Resolving]
  - Dysphagia [Unknown]
  - White blood cell count decreased [Unknown]
  - Neutrophil count decreased [Unknown]

NARRATIVE: CASE EVENT DATE: 20230930
